FAERS Safety Report 10876996 (Version 2)
Quarter: 2015Q2

REPORT INFORMATION
  Report Type: Report from Study
  Country: FR (occurrence: FR)
  Receive Date: 20150302
  Receipt Date: 20150430
  Transmission Date: 20150821
  Serious: Yes (Hospitalization)
  Sender: FDA-Public Use
  Company Number: FR-ALEXION PHARMACEUTICALS INC-A201404405

PATIENT

DRUGS (15)
  1. SOLIRIS [Suspect]
     Active Substance: ECULIZUMAB
     Indication: OFF LABEL USE
     Dosage: 300 MG, UNK
     Route: 042
     Dates: start: 20141112, end: 20141112
  2. SOLIRIS [Suspect]
     Active Substance: ECULIZUMAB
     Dosage: UNK
     Route: 042
     Dates: end: 20150202
  3. SOLIRIS [Suspect]
     Active Substance: ECULIZUMAB
     Dosage: 300 MG, UNK
     Route: 042
     Dates: start: 20141204, end: 20141204
  4. DOLIPRANE [Suspect]
     Active Substance: ACETAMINOPHEN
     Indication: PRODUCT USED FOR UNKNOWN INDICATION
     Dosage: UNK
     Route: 065
     Dates: start: 20141104
  5. ORACILLINE                         /00001801/ [Suspect]
     Active Substance: PENICILLIN V BENZATHINE
     Indication: PROPHYLAXIS
     Dosage: 800000 UI
     Route: 065
     Dates: start: 20141104
  6. MENINGOCOCCAL POLYSACCHARIDE VACCINE A NOS [Concomitant]
     Active Substance: MENINGOCOCCAL POLYSACCHARIDE VACCINE A\NEISSERIA MENINGITIDIS GROUP A CAPSULAR POLYSACCHARIDE ANTIGEN
     Indication: IMMUNISATION
     Dosage: UNK
     Route: 065
     Dates: start: 20131110, end: 20141110
  7. LIQUIGEN [Concomitant]
     Indication: WEIGHT CONTROL
     Route: 065
  8. SOLIRIS [Suspect]
     Active Substance: ECULIZUMAB
     Indication: HAEMOLYTIC URAEMIC SYNDROME
     Dosage: 300 MG, UNK
     Route: 042
     Dates: start: 20141105, end: 20141105
  9. UN-ALFA (ALFACALCIDOL) (1 MICROGRAM) (ALFACALCIDOL) [Suspect]
     Active Substance: ALFACALCIDOL
     Dosage: 1 DROPS
     Route: 065
     Dates: start: 20141119
  10. KEPPRA [Suspect]
     Active Substance: LEVETIRACETAM
     Indication: SEIZURE
     Dosage: 100 MG, QD
     Route: 065
     Dates: start: 20141104
  11. NEOCATE [Concomitant]
     Indication: DECREASED APPETITE
     Route: 065
  12. LOXEN [Suspect]
     Active Substance: NICARDIPINE HYDROCHLORIDE
     Indication: HYPERTENSION
     Dosage: 30 MG, QD
     Route: 065
     Dates: start: 20141104
  13. TRANDATE [Suspect]
     Active Substance: LABETALOL HYDROCHLORIDE
     Indication: HYPERTENSION
     Dosage: 100 MG, QD
     Route: 065
     Dates: start: 20141104
  14. UN-ALFA (ALFACALCIDOL) (1 MICROGRAM) (ALFACALCIDOL) [Suspect]
     Active Substance: ALFACALCIDOL
     Indication: PRODUCT USED FOR UNKNOWN INDICATION
     Dosage: 2 DROPS IN MORNING
     Route: 065
     Dates: start: 20141104
  15. CALCIDOSE                          /07357001/ [Suspect]
     Active Substance: CALCIUM CARBONATE
     Indication: PRODUCT USED FOR UNKNOWN INDICATION
     Dosage: 250 MG, QD
     Route: 065
     Dates: start: 20141104

REACTIONS (5)
  - Diarrhoea [Not Recovered/Not Resolved]
  - Decreased appetite [Unknown]
  - Vomiting [Unknown]
  - Off label use [Unknown]
  - Weight decreased [Not Recovered/Not Resolved]

NARRATIVE: CASE EVENT DATE: 20150125
